FAERS Safety Report 8269548-6 (Version None)
Quarter: 2012Q2

REPORT INFORMATION
  Report Type: 
  Country: None (occurrence: None)
  Receive Date: 20120409
  Receipt Date: 20120321
  Transmission Date: 20120825
  Serious: No
  Sender: FDA-Public Use
  Company Number: US-BAXTER-2012BAX000696

PATIENT
  Sex: Female
  Weight: 68.554 kg

DRUGS (6)
  1. PENICILLIN G [Concomitant]
     Route: 042
     Dates: start: 20120223, end: 20120223
  2. PENICILLIN G POTASSIUM [Suspect]
     Route: 042
     Dates: start: 20120224, end: 20120224
  3. PITOCIN [Concomitant]
     Route: 042
     Dates: start: 20120224, end: 20120224
  4. STADOL [Concomitant]
     Indication: PAIN
     Route: 042
     Dates: start: 20120223, end: 20120223
  5. BRETHINE [Concomitant]
     Indication: UTERINE CONTRACTIONS DURING PREGNANCY
     Route: 058
     Dates: start: 20120224, end: 20120224
  6. 0.9% SODIUM CHLORIDE INJECTION [Suspect]
     Route: 042
     Dates: start: 20120224, end: 20120224

REACTIONS (2)
  - INFUSION SITE PAIN [None]
  - MATERNAL EXPOSURE DURING PREGNANCY [None]
